FAERS Safety Report 12877518 (Version 1)
Quarter: 2016Q4

REPORT INFORMATION
  Report Type: Spontaneous
  Country: GB (occurrence: GB)
  Receive Date: 20161024
  Receipt Date: 20161024
  Transmission Date: 20170207
  Serious: Yes (Disabling)
  Sender: FDA-Public Use
  Company Number: GB-TEVA-705576ACC

PATIENT
  Age: 38 Year
  Sex: Female
  Weight: 64 kg

DRUGS (7)
  1. CARBAMAZEPINE. [Suspect]
     Active Substance: CARBAMAZEPINE
     Dates: start: 20160930
  2. ZAPAIN [Concomitant]
     Active Substance: ACETAMINOPHEN\CODEINE PHOSPHATE
     Dosage: TAKE 1 OR 2 4 TIMES A DAY.
     Dates: start: 20160928
  3. CLOBETASOL PROPIONATE. [Concomitant]
     Active Substance: CLOBETASOL PROPIONATE
     Dosage: 2 DOSAGE FORMS DAILY;
     Dates: start: 20160823, end: 20160830
  4. DOUBLEBASE [Concomitant]
     Active Substance: ISOPROPYL MYRISTATE\PARAFFIN
     Dates: start: 20160825, end: 20160826
  5. LEVOTHYROXINE. [Concomitant]
     Active Substance: LEVOTHYROXINE
     Dosage: 1 DOSAGE FORMS DAILY; EACH MORNING.
     Dates: start: 20160301
  6. GABAPENTIN. [Concomitant]
     Active Substance: GABAPENTIN
     Dosage: 3 DOSAGE FORMS DAILY; AND INCREASE GRADUALLY ACC...
     Dates: start: 20160930
  7. TAMOXIFEN [Concomitant]
     Active Substance: TAMOXIFEN
     Dosage: 1 DOSAGE FORMS DAILY;
     Dates: start: 20160607

REACTIONS (2)
  - Swelling face [Recovering/Resolving]
  - Erythema [Unknown]

NARRATIVE: CASE EVENT DATE: 20160930
